FAERS Safety Report 20616628 (Version 11)
Quarter: 2025Q3

REPORT INFORMATION
  Report Type: Spontaneous
  Country: CA (occurrence: CA)
  Receive Date: 20220321
  Receipt Date: 20250917
  Transmission Date: 20251021
  Serious: Yes (Hospitalization, Other)
  Sender: PFIZER
  Company Number: CA-PFIZER INC-2021007271

PATIENT
  Age: 57 Year
  Sex: Female

DRUGS (12)
  1. RUXIENCE [Suspect]
     Active Substance: RITUXIMAB-PVVR
     Indication: Rheumatoid arthritis
     Route: 042
     Dates: start: 20210211, end: 20210211
  2. RUXIENCE [Suspect]
     Active Substance: RITUXIMAB-PVVR
     Route: 042
     Dates: start: 20210806, end: 20210806
  3. RUXIENCE [Suspect]
     Active Substance: RITUXIMAB-PVVR
     Route: 042
  4. RUXIENCE [Suspect]
     Active Substance: RITUXIMAB-PVVR
     Route: 042
     Dates: start: 20220505, end: 20220505
  5. RUXIENCE [Suspect]
     Active Substance: RITUXIMAB-PVVR
     Route: 042
     Dates: start: 20221205, end: 20221205
  6. RUXIENCE [Suspect]
     Active Substance: RITUXIMAB-PVVR
     Route: 042
     Dates: start: 20230804, end: 20230804
  7. RUXIENCE [Suspect]
     Active Substance: RITUXIMAB-PVVR
     Route: 042
     Dates: start: 20240605
  8. RUXIENCE [Suspect]
     Active Substance: RITUXIMAB-PVVR
     Route: 042
     Dates: start: 20250501
  9. NAPROXEN [Concomitant]
     Active Substance: NAPROXEN
     Dosage: 1 DF, DAILY
  10. PANTOPRAZOLE SODIUM [Concomitant]
     Active Substance: PANTOPRAZOLE SODIUM
  11. PANTOPRAZOLE [Concomitant]
     Active Substance: PANTOPRAZOLE
     Dosage: 1 DF, DAILY
  12. PLAQUENIL [Concomitant]
     Active Substance: HYDROXYCHLOROQUINE SULFATE
     Dosage: 2 DF, DAILY

REACTIONS (17)
  - Neutropenia [Recovered/Resolved]
  - Pyrexia [Unknown]
  - Pneumonia [Recovered/Resolved]
  - Nephrolithiasis [Recovered/Resolved]
  - Neutropenia [Unknown]
  - Neutrophil count decreased [Unknown]
  - COVID-19 [Recovered/Resolved]
  - Malaise [Unknown]
  - Arthralgia [Recovering/Resolving]
  - Gait disturbance [Recovering/Resolving]
  - Condition aggravated [Unknown]
  - Ligament rupture [Unknown]
  - Urinary tract infection [Unknown]
  - Cystitis [Unknown]
  - Immune system disorder [Unknown]
  - Off label use [Unknown]
  - Off label use [Unknown]

NARRATIVE: CASE EVENT DATE: 20200101
